FAERS Safety Report 18707365 (Version 1)
Quarter: 2021Q1

REPORT INFORMATION
  Report Type: Spontaneous
  Country: US (occurrence: US)
  Receive Date: 20210106
  Receipt Date: 20210106
  Transmission Date: 20210419
  Serious: No
  Sender: FDA-Public Use
  Company Number: US-PERRIGO-20US016266

PATIENT
  Age: 37 Year
  Sex: Female
  Weight: 97.51 kg

DRUGS (4)
  1. LYRICA [Concomitant]
     Active Substance: PREGABALIN
     Indication: NEPHROPATHY
     Dosage: 50 MG, BID
     Route: 048
  2. TRAMADOL. [Concomitant]
     Active Substance: TRAMADOL
     Indication: NEPHROPATHY
  3. MIGRAINE FORMULA [Suspect]
     Active Substance: ACETAMINOPHEN\ASPIRIN\CAFFEINE
     Indication: MIGRAINE
     Dosage: 1 TABLET, PRN
     Route: 048
     Dates: start: 20201026, end: 20201108
  4. TRAMADOL. [Concomitant]
     Active Substance: TRAMADOL
     Indication: MIGRAINE
     Dosage: 50 MG, TID
     Route: 048

REACTIONS (8)
  - Hyperhidrosis [Recovered/Resolved]
  - Paraesthesia oral [Recovered/Resolved]
  - Underdose [Recovered/Resolved]
  - Fatigue [Recovered/Resolved]
  - Reaction to excipient [Recovered/Resolved]
  - Sensation of foreign body [Recovered/Resolved]
  - Myalgia [Recovered/Resolved]
  - Hot flush [Recovered/Resolved]

NARRATIVE: CASE EVENT DATE: 20201026
